FAERS Safety Report 7152303-8 (Version None)
Quarter: 2010Q4

REPORT INFORMATION
  Report Type: 
  Country: None (occurrence: None)
  Receive Date: 20101123
  Receipt Date: 20101111
  Transmission Date: 20110411
  Serious: Yes (Life-Threatening)
  Sender: FDA-Public Use
  Company Number: 2010MA004650

PATIENT
  Sex: Female

DRUGS (1)
  1. MIRTAZAPINE [Suspect]
     Indication: PRODUCT USED FOR UNKNOWN INDICATION

REACTIONS (4)
  - ELECTROCARDIOGRAM QT PROLONGED [None]
  - HEPATOTOXICITY [None]
  - SYNCOPE [None]
  - VENTRICULAR TACHYARRHYTHMIA [None]
